FAERS Safety Report 9510597 (Version 1)
Quarter: 2013Q3

REPORT INFORMATION
  Report Type: Spontaneous
  Country: US (occurrence: US)
  Receive Date: 20130909
  Receipt Date: 20130909
  Transmission Date: 20140515
  Serious: Yes (Other)
  Sender: FDA-Public Use
  Company Number: US-PFIZER INC-2013258610

PATIENT
  Age: 54 Year
  Sex: Female
  Weight: 68.03 kg

DRUGS (1)
  1. LYRICA [Suspect]
     Indication: FIBROMYALGIA
     Dosage: 150 MG (2 CAPSULES OF 75MG), 1X/DAY
     Route: 048

REACTIONS (2)
  - Polyarthritis [Unknown]
  - Fibromyalgia [Unknown]
